FAERS Safety Report 16176413 (Version 2)
Quarter: 2019Q2

REPORT INFORMATION
  Report Type: Spontaneous
  Country: JP (occurrence: JP)
  Receive Date: 20190409
  Receipt Date: 20190423
  Transmission Date: 20190711
  Serious: Yes (Death, Hospitalization, Other)
  Sender: FDA-Public Use
  Company Number: JP-PFIZER INC-2017208632

PATIENT
  Age: 80 Year
  Sex: Male

DRUGS (1)
  1. INLYTA [Suspect]
     Active Substance: AXITINIB
     Indication: RENAL CELL CARCINOMA STAGE IV
     Dosage: 5 MG, 2X/DAY
     Route: 048
     Dates: start: 20121001, end: 20170426

REACTIONS (4)
  - Angina pectoris [Recovered/Resolved]
  - Neoplasm progression [Fatal]
  - Cardiac arrest [Recovered/Resolved]
  - Platelet count decreased [Fatal]

NARRATIVE: CASE EVENT DATE: 20170427
